FAERS Safety Report 8760485 (Version 6)
Quarter: 2014Q1

REPORT INFORMATION
  Report Type: Report from Study
  Country: BR (occurrence: BR)
  Receive Date: 20120830
  Receipt Date: 20140206
  Transmission Date: 20141002
  Serious: Yes (Hospitalization, Other)
  Sender: FDA-Public Use
  Company Number: PHHY2012BR073830

PATIENT
  Sex: Female
  Weight: 70 kg

DRUGS (12)
  1. FORASEQ [Suspect]
     Indication: DYSPNOEA
     Dosage: 2 DF (2 INHALATION), DAILY
     Route: 055
  2. FORASEQ [Suspect]
     Indication: CHRONIC OBSTRUCTIVE PULMONARY DISEASE
     Dosage: 1 DF, (1 CAPSULE 2  TIMES PER DAY OF EACH TREATMENT)BID
     Route: 055
     Dates: start: 201209, end: 201212
  3. SERETIDE [Suspect]
     Dosage: UNK UKN, UNK
  4. LOSARTAN [Concomitant]
     Indication: CARDIAC DISORDER
     Dosage: 1 DF (HALF TABLET EACH 12 HOURS), QD
     Route: 048
  5. LASIX [Concomitant]
     Indication: CARDIAC DISORDER
     Dosage: 1 DF (1 TABLET AND A HALF A DAY)
     Route: 048
  6. MONOCORDIL [Concomitant]
     Indication: CARDIAC DISORDER
     Dosage: 1 DF, DAILY
     Route: 048
  7. MONOCORDIL [Concomitant]
     Dosage: 1 DF, QD
     Route: 048
  8. PURAN T4 [Concomitant]
     Indication: CARDIAC DISORDER
     Dosage: 1 DF, QD
     Route: 048
  9. ASA [Concomitant]
     Indication: CARDIAC DISORDER
     Dosage: 1 DF, QD
     Route: 048
  10. CLOPIDOGREL [Concomitant]
     Indication: CARDIAC DISORDER
     Dosage: 1 DF, QD
     Route: 048
  11. OMEPRAZOLE [Concomitant]
     Dosage: 1 CAPSULE IN THE MORNING
     Route: 048
  12. CARVEDILOL [Concomitant]
     Indication: CARDIAC DISORDER
     Dosage: 2 DF, DAILY

REACTIONS (14)
  - Oropharyngeal pain [Recovering/Resolving]
  - Pharyngeal oedema [Recovering/Resolving]
  - Dyspnoea [Recovering/Resolving]
  - Muscular weakness [Recovering/Resolving]
  - Oral candidiasis [Recovering/Resolving]
  - Swelling face [Recovering/Resolving]
  - Erythema [Recovering/Resolving]
  - Malaise [Recovering/Resolving]
  - Swelling [Recovering/Resolving]
  - Fatigue [Recovering/Resolving]
  - Device malfunction [Unknown]
  - Dysphonia [Recovering/Resolving]
  - Throat irritation [Recovering/Resolving]
  - Cough [Not Recovered/Not Resolved]
